FAERS Safety Report 5392937-4 (Version None)
Quarter: 2007Q3

REPORT INFORMATION
  Report Type: 
  Country: None (occurrence: None)
  Receive Date: 20070718
  Receipt Date: 20070706
  Transmission Date: 20080115
  Serious: Yes (Hospitalization)
  Sender: FDA-Public Use
  Company Number: GXKR2007IL05858

PATIENT
  Age: 17 Year
  Sex: Female

DRUGS (2)
  1. ASPIRIN [Suspect]
     Indication: THROMBOCYTHAEMIA
     Dosage: 100 MG
  2. ACETAZOLAMIDE [Concomitant]

REACTIONS (4)
  - BLEEDING TIME PROLONGED [None]
  - PAIN [None]
  - VAGINAL SWELLING [None]
  - VULVAL HAEMATOMA [None]
